FAERS Safety Report 5522011-5 (Version None)
Quarter: 2007Q4

REPORT INFORMATION
  Report Type: 
  Country: None (occurrence: None)
  Receive Date: 20071120
  Receipt Date: 20071111
  Transmission Date: 20080405
  Serious: Yes (Other)
  Sender: FDA-Public Use
  Company Number: US-AMGEN-STX252170

PATIENT
  Sex: Male

DRUGS (2)
  1. ENBREL [Suspect]
     Indication: PSORIATIC ARTHROPATHY
     Route: 058
     Dates: start: 20050901
  2. ENBREL [Suspect]
     Indication: PSORIASIS

REACTIONS (5)
  - BLASTOMYCOSIS [None]
  - HEPATOMEGALY [None]
  - PANCREATIC ENLARGEMENT [None]
  - PSORIASIS [None]
  - SPLENOMEGALY [None]
